FAERS Safety Report 23406069 (Version 5)
Quarter: 2024Q1

REPORT INFORMATION
  Report Type: Report from Study
  Country: US (occurrence: US)
  Receive Date: 20240116
  Receipt Date: 20240307
  Transmission Date: 20240410
  Serious: Yes (Other)
  Sender: FDA-Public Use
  Company Number: US-ABBVIE-5346362

PATIENT
  Age: 58 Year
  Sex: Female
  Weight: 113 kg

DRUGS (23)
  1. HUMIRA [Suspect]
     Active Substance: ADALIMUMAB
     Indication: Crohn^s disease
     Dosage: CITRATE FREE
     Route: 058
     Dates: start: 201508
  2. HUMIRA [Suspect]
     Active Substance: ADALIMUMAB
     Dosage: CITRATE FREE
     Route: 058
  3. HUMIRA [Suspect]
     Active Substance: ADALIMUMAB
     Dosage: CITRATE FREE
     Route: 058
     Dates: start: 20230713
  4. BUDESONIDE [Suspect]
     Active Substance: BUDESONIDE
     Indication: Product used for unknown indication
     Dosage: FORM STRENGTH: 6MG?FREQUENCY TEXT: DAILY X 4 WEEKS
     Route: 048
  5. BUDESONIDE [Suspect]
     Active Substance: BUDESONIDE
     Indication: Product used for unknown indication
     Dosage: FORM STRENGTH: 9MG
     Route: 048
  6. BUDESONIDE [Suspect]
     Active Substance: BUDESONIDE
     Indication: Product used for unknown indication
     Dosage: FORM STRENGTH: 3MG?FREQUENCY TEXT: DAILY 4 WEEKS?3 MG, 2 CAPSULES ONCE A DAY FOR 14 DAYS, 1 CAPSU...
     Route: 048
     Dates: end: 20230910
  7. ASPIRIN [Concomitant]
     Active Substance: ASPIRIN
     Indication: Product used for unknown indication
     Dosage: PILL
     Route: 048
  8. VITAMIN D [Concomitant]
     Active Substance: VITAMIN D NOS
     Indication: Product used for unknown indication
  9. VITAMIN B COMPLEX [Concomitant]
     Active Substance: CYANOCOBALAMIN\DEXPANTHENOL\NIACINAMIDE\PYRIDOXINE HYDROCHLORIDE\RIBOFLAVIN 5^-PHOSPHATE SODIUM\THIA
     Indication: Product used for unknown indication
  10. XYZAL [Concomitant]
     Active Substance: LEVOCETIRIZINE DIHYDROCHLORIDE
     Indication: Hypersensitivity
  11. PREDNISONE [Concomitant]
     Active Substance: PREDNISONE
     Indication: Product used for unknown indication
     Dosage: TAKE 4 TABS BY MOUTH DAILY FOR 2 WEEKS
     Route: 048
  12. PREDNISONE [Concomitant]
     Active Substance: PREDNISONE
     Indication: Product used for unknown indication
     Dosage: 2 TABS DAILY FOR 2 WEEKS
     Route: 048
  13. PREDNISONE [Concomitant]
     Active Substance: PREDNISONE
     Indication: Product used for unknown indication
     Dosage: A TAB DAILY FOR 2 WEEKS
     Route: 048
  14. PREDNISONE [Concomitant]
     Active Substance: PREDNISONE
     Indication: Product used for unknown indication
     Dosage: 3 TABS DAILY FOR 2 WEEKS
     Route: 048
  15. CELEXA [Concomitant]
     Active Substance: CITALOPRAM HYDROBROMIDE
     Indication: Product used for unknown indication
     Route: 048
  16. FLONASE ALLERGY RELIEF [Concomitant]
     Active Substance: FLUTICASONE PROPIONATE
     Indication: Product used for unknown indication
     Dosage: FLONASE ALLERGY RELIEF 5O MCG/ACT SUSPENSION NASAL
     Route: 045
  17. BIOTIN [Concomitant]
     Active Substance: BIOTIN
     Indication: Product used for unknown indication
  18. Cartia [Concomitant]
     Indication: Product used for unknown indication
  19. CHOLESTYRAMINE [Concomitant]
     Active Substance: CHOLESTYRAMINE
     Indication: Product used for unknown indication
     Dosage: CHOLESTYRAMINE 4 GM PACKETS PACKET MIXED WITH WATER OR NON-CARBONATED DRINK
     Route: 048
  20. ELIQUIS [Concomitant]
     Active Substance: APIXABAN
     Indication: Product used for unknown indication
     Route: 048
  21. LYRICA [Concomitant]
     Active Substance: PREGABALIN
     Indication: Product used for unknown indication
     Route: 048
  22. CYANOCOBALAMIN\FOLIC ACID [Concomitant]
     Active Substance: CYANOCOBALAMIN\FOLIC ACID
     Indication: Product used for unknown indication
     Dosage: VITAMIN B12-FOLIC ACID 500-400 MCG
     Route: 048
  23. CALEX [Concomitant]
     Indication: Product used for unknown indication
     Route: 048

REACTIONS (21)
  - Large intestinal obstruction [Recovering/Resolving]
  - Bowel movement irregularity [Unknown]
  - Discomfort [Unknown]
  - Large intestinal ulcer [Unknown]
  - Unevaluable event [Unknown]
  - Gastrointestinal disorder [Unknown]
  - Diverticulum intestinal [Unknown]
  - Gastrooesophageal reflux disease [Unknown]
  - Laryngeal disorder [Unknown]
  - Intestinal polyp [Unknown]
  - Colonic fistula [Unknown]
  - Colorectal adenoma [Unknown]
  - Haemorrhoids [Unknown]
  - Gastrointestinal mucosal disorder [Unknown]
  - Terminal ileitis [Unknown]
  - Duodenitis [Unknown]
  - Chronic gastritis [Unknown]
  - Anastomotic ulcer [Unknown]
  - Diarrhoea infectious [Recovering/Resolving]
  - Headache [Unknown]
  - Constipation [Unknown]

NARRATIVE: CASE EVENT DATE: 20161011
